FAERS Safety Report 7587254-8 (Version None)
Quarter: 2011Q3

REPORT INFORMATION
  Report Type: 
  Country: None (occurrence: None)
  Receive Date: 20110701
  Receipt Date: 20110628
  Transmission Date: 20111222
  Serious: Yes (Death)
  Sender: FDA-Public Use
  Company Number: PHHY2011GB45823

PATIENT
  Age: 38 Year
  Sex: Male

DRUGS (8)
  1. DIHYDROCODEINE BITARTRATE INJ [Suspect]
  2. CHLORDIAZEPOXIDE [Suspect]
  3. MIRTAZAPINE [Suspect]
  4. OMEPRAZOLE [Suspect]
  5. ZYPREXA [Suspect]
  6. DMD [Concomitant]
  7. METHADONE HCL [Suspect]
  8. DIAZEPAM [Suspect]

REACTIONS (4)
  - INFLUENZA LIKE ILLNESS [None]
  - OROPHARYNGEAL PAIN [None]
  - CHILLS [None]
  - TOXICITY TO VARIOUS AGENTS [None]
